FAERS Safety Report 5649304-5 (Version None)
Quarter: 2008Q1

REPORT INFORMATION
  Report Type: 
  Country: None (occurrence: None)
  Receive Date: 20080304
  Receipt Date: 20071211
  Transmission Date: 20080703
  Serious: No
  Sender: FDA-Public Use
  Company Number: US-BAYER-200716673NA

PATIENT
  Age: 17 Year
  Sex: Female
  Weight: 86 kg

DRUGS (1)
  1. MAGNEVIST [Suspect]
     Indication: NUCLEAR MAGNETIC RESONANCE IMAGING BRAIN
     Dosage: TOTAL DAILY DOSE: 18 ML  UNIT DOSE: 18 ML
     Route: 042
     Dates: start: 20071207, end: 20071207

REACTIONS (1)
  - NAUSEA [None]
